FAERS Safety Report 4363901-9 (Version None)
Quarter: 2004Q2

REPORT INFORMATION
  Report Type: 
  Country: None (occurrence: None)
  Receive Date: 20040518
  Receipt Date: 20040119
  Transmission Date: 20050107
  Serious: No
  Sender: FDA-Public Use
  Company Number: PHEH2004US00990

PATIENT
  Age: 39 Year
  Sex: Female

DRUGS (2)
  1. GLEEVEC [Suspect]
     Indication: CHRONIC MYELOID LEUKAEMIA
     Dosage: 400 MG, QD, ORAL
     Route: 048
     Dates: start: 20031201
  2. GENESTIN (ESTROGENS CONJUGATE) [Concomitant]

REACTIONS (3)
  - HYPOACUSIS [None]
  - PERIORBITAL OEDEMA [None]
  - SENSATION OF BLOCK IN EAR [None]
